FAERS Safety Report 21035167 (Version 2)
Quarter: 2022Q3

REPORT INFORMATION
  Report Type: Report from Study
  Country: JP (occurrence: JP)
  Receive Date: 20220701
  Receipt Date: 20220905
  Transmission Date: 20221026
  Serious: No
  Sender: FDA-Public Use
  Company Number: JP-MSD-LAG010317-049

PATIENT
  Age: 76 Year
  Sex: Male
  Weight: 52 kg

DRUGS (1)
  1. MOLNUPIRAVIR [Suspect]
     Active Substance: MOLNUPIRAVIR
     Indication: COVID-19 treatment
     Dosage: 800 MILLIGRAM, TWICE A DAY
     Route: 048
     Dates: start: 20220212, end: 20220213

REACTIONS (2)
  - Oxygen saturation decreased [Recovering/Resolving]
  - Product use issue [Unknown]

NARRATIVE: CASE EVENT DATE: 20220212
